FAERS Safety Report 7738118-8 (Version None)
Quarter: 2011Q3

REPORT INFORMATION
  Report Type: 
  Country: None (occurrence: None)
  Receive Date: 20110908
  Receipt Date: 20110826
  Transmission Date: 20111222
  Serious: Yes (Death, Other)
  Sender: FDA-Public Use
  Company Number: IT-CELGENEUS-083-20785-11083266

PATIENT

DRUGS (2)
  1. REVLIMID [Suspect]
     Indication: MULTIPLE MYELOMA
     Route: 048
  2. THALIDOMIDE [Suspect]
     Indication: MULTIPLE MYELOMA
     Route: 048

REACTIONS (10)
  - CARDIAC DISORDER [None]
  - DEEP VEIN THROMBOSIS [None]
  - NEUTROPENIA [None]
  - NEUROPATHY PERIPHERAL [None]
  - THROMBOCYTOPENIA [None]
  - DEATH [None]
  - PULMONARY EMBOLISM [None]
  - GASTROINTESTINAL DISORDER [None]
  - INFECTION [None]
  - EMBOLISM [None]
